FAERS Safety Report 8311128-8 (Version None)
Quarter: 2012Q2

REPORT INFORMATION
  Report Type: 
  Country: None (occurrence: None)
  Receive Date: 20120425
  Receipt Date: 20120417
  Transmission Date: 20120825
  Serious: Yes (Other)
  Sender: FDA-Public Use
  Company Number: US-JNJFOC-20120408074

PATIENT
  Age: 70 Year
  Sex: Male
  Weight: 83.92 kg

DRUGS (8)
  1. PRILOSEC [Concomitant]
     Indication: GASTROOESOPHAGEAL REFLUX DISEASE
     Route: 065
     Dates: start: 20060101
  2. XANAX [Concomitant]
     Indication: SLEEP DISORDER THERAPY
     Route: 065
     Dates: start: 20070101
  3. SIMVASTATIN [Concomitant]
     Indication: BLOOD CHOLESTEROL INCREASED
     Route: 065
  4. FLOMAX [Concomitant]
     Indication: PROSTATOMEGALY
     Route: 065
     Dates: start: 20110101
  5. ASPIRIN [Concomitant]
     Indication: CARDIAC DISORDER
     Route: 065
     Dates: start: 20110101
  6. VITAMIN [Concomitant]
     Indication: GENERAL PHYSICAL HEALTH DETERIORATION
     Route: 065
  7. ZYRTEC [Suspect]
     Route: 048
  8. ZYRTEC [Suspect]
     Indication: SEASONAL ALLERGY
     Route: 048
     Dates: start: 20120415, end: 20120417

REACTIONS (6)
  - PANIC ATTACK [None]
  - PSYCHOMOTOR HYPERACTIVITY [None]
  - WRONG DRUG ADMINISTERED [None]
  - BLOOD PRESSURE INCREASED [None]
  - ABNORMAL DREAMS [None]
  - INSOMNIA [None]
